FAERS Safety Report 4324950-X (Version None)
Quarter: 2004Q1

REPORT INFORMATION
  Report Type: 
  Country: None (occurrence: None)
  Receive Date: 20040326
  Receipt Date: 20040223
  Transmission Date: 20041129
  Serious: Yes (Hospitalization)
  Sender: FDA-Public Use
  Company Number: GB-BRISTOL-MYERS SQUIBB COMPANY-12513990

PATIENT
  Age: 73 Year
  Sex: Male
  Weight: 72 kg

DRUGS (3)
  1. PACLITAXEL [Suspect]
     Indication: BLADDER CANCER
     Route: 042
     Dates: start: 20040211, end: 20040211
  2. CISPLATIN [Suspect]
     Indication: BLADDER CANCER
     Dates: start: 20040204, end: 20040204
  3. GEMCITABINE [Suspect]
     Indication: BLADDER CANCER
     Dates: start: 20040211, end: 20040211

REACTIONS (1)
  - NEUTROPENIC SEPSIS [None]
